FAERS Safety Report 7369225-X (Version None)
Quarter: 2011Q1

REPORT INFORMATION
  Report Type: 
  Country: None (occurrence: None)
  Receive Date: 20110321
  Receipt Date: 20110321
  Transmission Date: 20110831
  Serious: No
  Sender: FDA-Public Use
  Company Number: None

PATIENT
  Sex: Female

DRUGS (1)
  1. ENBREL [Suspect]
     Indication: RHEUMATOID ARTHRITIS
     Dosage: 50MG QS SQ
     Route: 058
     Dates: start: 20110217

REACTIONS (3)
  - HYPOAESTHESIA FACIAL [None]
  - PARAESTHESIA [None]
  - HEADACHE [None]
